FAERS Safety Report 20236967 (Version 1)
Quarter: 2021Q4

REPORT INFORMATION
  Report Type: Spontaneous
  Country: AT (occurrence: AT)
  Receive Date: 20211228
  Receipt Date: 20211228
  Transmission Date: 20220303
  Serious: Yes (Other)
  Sender: FDA-Public Use
  Company Number: AT-002147023-NVSC2021AT267253

PATIENT
  Age: 69 Year
  Sex: Female

DRUGS (2)
  1. LETROZOLE [Suspect]
     Active Substance: LETROZOLE
     Indication: Breast cancer
     Dosage: UNK
     Route: 065
     Dates: start: 20190308
  2. PALBOCICLIB [Concomitant]
     Active Substance: PALBOCICLIB
     Indication: Product used for unknown indication
     Dosage: UNK
     Route: 065
     Dates: start: 20190308

REACTIONS (5)
  - Metastases to liver [Unknown]
  - Malignant neoplasm progression [Unknown]
  - Breast cancer [Unknown]
  - BRCA1 gene mutation [Unknown]
  - PIK3CA-activated mutation [Unknown]

NARRATIVE: CASE EVENT DATE: 20200401
